FAERS Safety Report 6874710-0 (Version None)
Quarter: 2010Q3

REPORT INFORMATION
  Report Type: 
  Country: None (occurrence: None)
  Receive Date: 20100722
  Receipt Date: 20100715
  Transmission Date: 20110219
  Serious: Yes (Other)
  Sender: FDA-Public Use
  Company Number: RB-13141-2010

PATIENT
  Sex: Female

DRUGS (4)
  1. SUBOXONE [Suspect]
     Indication: DRUG DEPENDENCE
     Dosage: (8 MG BID SUBLINGUAL)
     Route: 060
     Dates: start: 20090701
  2. XANAX [Suspect]
     Indication: ANXIETY
     Dosage: (1 MG TID ORAL)
     Route: 048
     Dates: start: 20090101, end: 20100201
  3. XANAX [Concomitant]
  4. CYMBALTA [Concomitant]

REACTIONS (1)
  - CONVULSION [None]
